FAERS Safety Report 6126553-3 (Version None)
Quarter: 2009Q1

REPORT INFORMATION
  Report Type: 
  Country: None (occurrence: None)
  Receive Date: 20090320
  Receipt Date: 20090312
  Transmission Date: 20090719
  Serious: Yes (Hospitalization)
  Sender: FDA-Public Use
  Company Number: AT-ABBOTT-09P-009-0559899-00

PATIENT
  Sex: Male
  Weight: 71 kg

DRUGS (4)
  1. HUMIRA [Suspect]
     Indication: PSORIATIC ARTHROPATHY
     Dates: start: 20081027
  2. HUMIRA [Suspect]
     Dates: start: 20081110
  3. HUMIRA [Suspect]
     Dates: start: 20081124
  4. HUMIRA [Suspect]
     Dates: start: 20081222

REACTIONS (1)
  - DIARRHOEA [None]
